FAERS Safety Report 8395005-2 (Version None)
Quarter: 2012Q2

REPORT INFORMATION
  Report Type: 
  Country: None (occurrence: None)
  Receive Date: 20120530
  Receipt Date: 20120516
  Transmission Date: 20120825
  Serious: Yes (Other)
  Sender: FDA-Public Use
  Company Number: JP-ELI_LILLY_AND_COMPANY-JP201205005873

PATIENT
  Age: 62 Year

DRUGS (3)
  1. NITRAZEPAM [Concomitant]
  2. ZYPREXA [Suspect]
     Route: 048
  3. MAGNESIUM OXIDE [Concomitant]

REACTIONS (2)
  - MYELODYSPLASTIC SYNDROME [None]
  - PARKINSONISM [None]
